FAERS Safety Report 9222702 (Version 2)
Quarter: 2013Q2

REPORT INFORMATION
  Report Type: Spontaneous
  Country: ES (occurrence: ES)
  Receive Date: 20130410
  Receipt Date: 20130422
  Transmission Date: 20140414
  Serious: Yes (Other)
  Sender: FDA-Public Use
  Company Number: ES-ROCHE-1209880

PATIENT
  Age: 45 Year
  Sex: Female

DRUGS (3)
  1. ACTILYSE [Suspect]
     Indication: PULMONARY EMBOLISM
     Dosage: FIRST 50 MG BOLUS ADMINISTERED DURING 2 - 3 MINUTES, SECOND 50 MG BOLUS AFTER 30 MINUTES DURING 5 MI
     Route: 065
  2. HEPARIN [Concomitant]
  3. DOPAMINE [Concomitant]

REACTIONS (2)
  - Injection site haemorrhage [Unknown]
  - Haemoglobin decreased [Unknown]
